FAERS Safety Report 6332711-5 (Version None)
Quarter: 2009Q3

REPORT INFORMATION
  Report Type: 
  Country: None (occurrence: None)
  Receive Date: 20090828
  Receipt Date: 20090825
  Transmission Date: 20100115
  Serious: Yes (Hospitalization)
  Sender: FDA-Public Use
  Company Number: A0804650A

PATIENT
  Sex: Female

DRUGS (2)
  1. ALLI [Suspect]
     Indication: WEIGHT LOSS DIET
     Route: 048
     Dates: start: 20090201, end: 20090101
  2. MULTI-VITAMINS [Concomitant]
     Indication: VITAMIN SUPPLEMENTATION

REACTIONS (8)
  - ABASIA [None]
  - ABDOMINAL INFECTION [None]
  - ABDOMINAL PAIN [None]
  - ASCITES [None]
  - EATING DISORDER [None]
  - INTERNAL INJURY [None]
  - THROMBOSIS [None]
  - WEIGHT DECREASED [None]
